FAERS Safety Report 15949756 (Version 2)
Quarter: 2019Q3

REPORT INFORMATION
  Report Type: Spontaneous
  Country: US (occurrence: US)
  Receive Date: 20190211
  Receipt Date: 20190729
  Transmission Date: 20191004
  Serious: No
  Sender: FDA-Public Use
  Company Number: US-PFIZER INC-2019060774

PATIENT
  Age: 9 Year
  Sex: Female

DRUGS (1)
  1. GENOTROPIN [Suspect]
     Active Substance: SOMATROPIN
     Dosage: 1.8 MG, UNK [6 DAYS A WEEK]/ (12MG CARTRIDGE, 1.8MG 6 DAYS A WEEK)
     Dates: start: 20121126

REACTIONS (3)
  - Headache [Unknown]
  - Acne [Unknown]
  - Pain in extremity [Unknown]
